FAERS Safety Report 9335960 (Version 1)
Quarter: 2013Q2

REPORT INFORMATION
  Report Type: Spontaneous
  Country: DE (occurrence: DE)
  Receive Date: 20130606
  Receipt Date: 20130606
  Transmission Date: 20140414
  Serious: Yes (Hospitalization)
  Sender: FDA-Public Use
  Company Number: GXKR2013DE002019

PATIENT
  Sex: 0

DRUGS (3)
  1. MONTELUKAST SODIUM [Suspect]
     Indication: RESPIRATORY SYNCYTIAL VIRUS INFECTION
     Dosage: 4 MG
     Route: 048
     Dates: end: 20130329
  2. FLUTICASONE [Concomitant]
     Indication: RESPIRATORY SYNCYTIAL VIRUS INFECTION
     Dosage: 125 UG
     Route: 055
     Dates: end: 20130403
  3. ZYMAFLUOR D [Concomitant]
     Indication: PROPHYLAXIS
     Dosage: 500 IU
     Route: 049

REACTIONS (4)
  - Alopecia [Unknown]
  - Dermatitis exfoliative [Unknown]
  - Hyperaesthesia [Unknown]
  - Nikolsky^s sign [Unknown]
